FAERS Safety Report 5717233-4 (Version None)
Quarter: 2008Q2

REPORT INFORMATION
  Report Type: 
  Country: None (occurrence: None)
  Receive Date: 20080424
  Receipt Date: 20080421
  Transmission Date: 20081010
  Serious: Yes (Death, Hospitalization, Other)
  Sender: FDA-Public Use
  Company Number: US-PFIZER INC-2008035031

PATIENT
  Sex: Male
  Weight: 71.2 kg

DRUGS (12)
  1. NORVASC [Suspect]
     Indication: HYPERTENSION
  2. ANTICOAGULANTS [Suspect]
     Dates: start: 20041011, end: 20060923
  3. ANTICOAGULANTS [Suspect]
  4. K-TAB [Suspect]
     Indication: MINERAL SUPPLEMENTATION
  5. DIOVAN [Suspect]
     Indication: HYPERTENSION
  6. DILTIAZEM HYDROCHLORIDE [Suspect]
     Indication: HYPERTENSION
  7. GLUCOPHAGE [Concomitant]
  8. PREDNISONE [Concomitant]
  9. ATENOLOL [Concomitant]
  10. ATORVASTATIN CALCIUM [Concomitant]
  11. NAPROXEN SODIUM [Concomitant]
  12. TORSEMIDE [Concomitant]

REACTIONS (12)
  - ABDOMINAL DISTENSION [None]
  - ABDOMINAL PAIN UPPER [None]
  - ASTHENIA [None]
  - BRADYCARDIA [None]
  - CARDIO-RESPIRATORY ARREST [None]
  - CHRONIC OBSTRUCTIVE PULMONARY DISEASE [None]
  - GALLBLADDER ENLARGEMENT [None]
  - GASTROINTESTINAL HAEMORRHAGE [None]
  - HYPOTENSION [None]
  - MUSCULOSKELETAL CHEST PAIN [None]
  - RENAL FAILURE ACUTE [None]
  - VOMITING [None]
